FAERS Safety Report 16533683 (Version 1)
Quarter: 2019Q3

REPORT INFORMATION
  Report Type: Report from Study
  Country: US (occurrence: US)
  Receive Date: 20190704
  Receipt Date: 20190704
  Transmission Date: 20191004
  Serious: Yes (Other)
  Sender: FDA-Public Use
  Company Number: US-ROCHE-2347737

PATIENT
  Sex: Female

DRUGS (1)
  1. OCREVUS [Suspect]
     Active Substance: OCRELIZUMAB
     Indication: MULTIPLE SCLEROSIS
     Dosage: ONGOING:UNKNOWN?ON 18/APR/2019, RECEIVED THE MOST RECENT DOSE.
     Route: 065
     Dates: start: 20190404

REACTIONS (1)
  - Bronchitis [Not Recovered/Not Resolved]
